FAERS Safety Report 5085923-5 (Version None)
Quarter: 2006Q3

REPORT INFORMATION
  Report Type: 
  Country: None (occurrence: None)
  Receive Date: 20060817
  Receipt Date: 20060807
  Transmission Date: 20061208
  Serious: Yes (Disabling)
  Sender: FDA-Public Use
  Company Number: 2006097241

PATIENT
  Age: 70 Year
  Sex: Female
  Weight: 84 kg

DRUGS (9)
  1. LYRICA [Suspect]
     Indication: ARTHRALGIA
     Dosage: 300 MG (150 MG, 2 IN 1 D), ORAL
     Route: 048
     Dates: start: 20060503
  2. ASPIRIN [Concomitant]
  3. ATORVASTATIN CALCIUM [Concomitant]
  4. BECONASE [Concomitant]
  5. BENDROFLUAZIDE            (BENDROFLUMETHIAZIDE) [Concomitant]
  6. DIHYDROCODEINE [Concomitant]
  7. MOXONIDINE [Concomitant]
  8. ACETAMINOPHEN [Concomitant]
  9. RAMIPRIL [Concomitant]

REACTIONS (3)
  - FEELING ABNORMAL [None]
  - LOSS OF CONSCIOUSNESS [None]
  - SYNCOPE [None]
